FAERS Safety Report 7329741-3 (Version None)
Quarter: 2011Q1

REPORT INFORMATION
  Report Type: 
  Country: None (occurrence: None)
  Receive Date: 20110303
  Receipt Date: 20110221
  Transmission Date: 20110831
  Serious: Yes (Hospitalization)
  Sender: FDA-Public Use
  Company Number: US-ELI_LILLY_AND_COMPANY-US201005007617

PATIENT
  Sex: Male

DRUGS (5)
  1. IMURAN [Concomitant]
  2. PREDNISONE [Concomitant]
     Dates: start: 20040101
  3. FORTEO [Suspect]
     Dosage: 20 UG, DAILY (1/D)
     Route: 058
     Dates: end: 20110119
  4. FORTEO [Suspect]
     Indication: STRESS FRACTURE
     Dosage: 20 UG, DAILY (1/D)
     Route: 058
     Dates: start: 20100503
  5. FORTEO [Suspect]
     Dosage: 20 UG, DAILY (1/D)
     Route: 058

REACTIONS (8)
  - SEPSIS [None]
  - CELLULITIS [None]
  - VIRAL INFECTION [None]
  - NAUSEA [None]
  - FEELING ABNORMAL [None]
  - BLOOD PRESSURE DECREASED [None]
  - HAEMOLYTIC ANAEMIA [None]
  - SKIN DISORDER [None]
